FAERS Safety Report 5857891-7 (Version None)
Quarter: 2008Q3

REPORT INFORMATION
  Report Type: 
  Country: None (occurrence: None)
  Receive Date: 20080825
  Receipt Date: 20080825
  Transmission Date: 20090109
  Serious: Yes (Hospitalization)
  Sender: FDA-Public Use
  Company Number: None

PATIENT
  Age: 54 Year
  Sex: Female
  Weight: 95.709 kg

DRUGS (1)
  1. RECLAST [Suspect]
     Dosage: ONCE IV DRIP
     Route: 041
     Dates: start: 20080819, end: 20080819

REACTIONS (9)
  - ARTHRALGIA [None]
  - BLOOD PRESSURE INCREASED [None]
  - BONE PAIN [None]
  - CHILLS [None]
  - MUSCULOSKELETAL CHEST PAIN [None]
  - PYREXIA [None]
  - RASH [None]
  - TREMOR [None]
  - VOMITING [None]
